FAERS Safety Report 10033975 (Version 1)
Quarter: 2014Q1

REPORT INFORMATION
  Report Type: Spontaneous
  Country: SE (occurrence: None)
  Receive Date: 20140320
  Receipt Date: 20140320
  Transmission Date: 20141002
  Serious: Yes (Hospitalization)
  Sender: FDA-Public Use
  Company Number: VAL_03035_2014

PATIENT
  Age: 74 Year
  Sex: Male

DRUGS (9)
  1. METOPROLOL [Suspect]
     Indication: PRODUCT USED FOR UNKNOWN INDICATION
  2. TEGRETOL [Suspect]
     Indication: PRODUCT USED FOR UNKNOWN INDICATION
  3. OLANZAPINE (OLANZAPINE) [Suspect]
     Indication: PRODUCT USED FOR UNKNOWN INDICATION
  4. FELODIPINE [Suspect]
     Indication: PRODUCT USED FOR UNKNOWN INDICATION
  5. LITAREX [Suspect]
     Indication: PRODUCT USED FOR UNKNOWN INDICATION
  6. PROPAVAN [Suspect]
     Indication: PRODUCT USED FOR UNKNOWN INDICATION
  7. ZOPICLONE (ZOPICLONE) [Suspect]
     Indication: PRODUCT USED FOR UNKNOWN INDICATION
  8. ETALPHA [Suspect]
     Indication: PRODUCT USED FOR UNKNOWN INDICATION
  9. KALCIDON [Suspect]
     Indication: PRODUCT USED FOR UNKNOWN INDICATION

REACTIONS (2)
  - Toxicity to various agents [None]
  - Metabolic acidosis [None]
